FAERS Safety Report 6496188-1 (Version None)
Quarter: 2009Q4

REPORT INFORMATION
  Report Type: 
  Country: None (occurrence: None)
  Receive Date: 20091214
  Receipt Date: 20091019
  Transmission Date: 20100525
  Serious: Yes (Other)
  Sender: FDA-Public Use
  Company Number: US-BRISTOL-MYERS SQUIBB COMPANY-14821383

PATIENT
  Age: 30 Year
  Sex: Female
  Weight: 57 kg

DRUGS (2)
  1. ABILIFY [Suspect]
     Indication: BIPOLAR II DISORDER
     Dosage: ON 10/15/2009 THE DOSE WAS INCREASED TO 5MG(CONTINUED FOR 1 WEEK)
     Route: 048
     Dates: start: 20091008
  2. MULTI-VITAMIN [Concomitant]
     Dosage: WOMEN'S ONE A DAY MULTIVITAMIN TAKEN AT BED TIME

REACTIONS (1)
  - CONVULSION [None]
